FAERS Safety Report 7641903-4 (Version None)
Quarter: 2011Q3

REPORT INFORMATION
  Report Type: 
  Country: None (occurrence: None)
  Receive Date: 20110728
  Receipt Date: 20110725
  Transmission Date: 20111222
  Serious: Yes (Hospitalization)
  Sender: FDA-Public Use
  Company Number: US-EISAI INC-E2020-09496-SOL-US

PATIENT
  Sex: Female

DRUGS (3)
  1. XALATAN [Suspect]
     Indication: GLAUCOMA
     Dosage: 1 DROP IN EACH EYE DAILY
     Route: 047
     Dates: start: 20080101
  2. ARICEPT [Suspect]
     Route: 048
     Dates: start: 20080101
  3. ARICEPT [Suspect]
     Route: 048
     Dates: start: 20100101

REACTIONS (3)
  - CARDIAC DISORDER [None]
  - ABDOMINAL PAIN UPPER [None]
  - SYNCOPE [None]
